FAERS Safety Report 11810188 (Version 1)
Quarter: 2015Q4

REPORT INFORMATION
  Report Type: Spontaneous
  Country: US (occurrence: None)
  Receive Date: 20151207
  Receipt Date: 20151207
  Transmission Date: 20160305
  Serious: No
  Sender: FDA-Public Use
  Company Number: None

PATIENT
  Sex: Female

DRUGS (1)
  1. CAPECITABINE. [Suspect]
     Active Substance: CAPECITABINE
     Indication: PRODUCT USED FOR UNKNOWN INDICATION
     Dosage: 2000MG   BID FOR 14 DAYS OF 21 DAY CYCLE  PO
     Route: 048
     Dates: start: 20150625

REACTIONS (4)
  - Eye pain [None]
  - Skin exfoliation [None]
  - Pain in extremity [None]
  - Tooth disorder [None]
